FAERS Safety Report 9537470 (Version 1)
Quarter: 2013Q3

REPORT INFORMATION
  Report Type: Spontaneous
  Country: CO (occurrence: CO)
  Receive Date: 20130919
  Receipt Date: 20130919
  Transmission Date: 20140515
  Serious: Yes (Other)
  Sender: FDA-Public Use
  Company Number: CO-JNJFOC-20130908377

PATIENT
  Age: 52 Year
  Sex: Male

DRUGS (5)
  1. REMICADE [Suspect]
     Indication: ANKYLOSING SPONDYLITIS
     Dosage: ALSO REPORTED AS 5 MG/KG
     Route: 042
     Dates: start: 20130502
  2. REMICADE [Suspect]
     Indication: ANKYLOSING SPONDYLITIS
     Dosage: ALSO REPORTED AS 5 MG/KG
     Route: 042
     Dates: start: 20130214
  3. REMICADE [Suspect]
     Indication: ANKYLOSING SPONDYLITIS
     Dosage: ALSO REPORTED AS 5 MG/KG
     Route: 042
     Dates: start: 20130529, end: 20130530
  4. SULFASALAZINE [Concomitant]
     Route: 065
  5. PYRIDOXINE [Concomitant]
     Route: 065

REACTIONS (2)
  - Hepatic enzyme increased [Unknown]
  - Blood creatinine increased [Unknown]
